FAERS Safety Report 9701299 (Version 1)
Quarter: 2013Q4

REPORT INFORMATION
  Report Type: Spontaneous
  Country: US (occurrence: None)
  Receive Date: 20131120
  Receipt Date: 20131120
  Transmission Date: 20140711
  Serious: No
  Sender: FDA-Public Use
  Company Number: None

PATIENT
  Age: 66 Year
  Sex: Female
  Weight: 76.1 kg

DRUGS (2)
  1. CARBOPLATIN [Suspect]
  2. TAXOL [Suspect]

REACTIONS (3)
  - White blood cell count abnormal [None]
  - Neutrophil count abnormal [None]
  - Haemoglobin abnormal [None]
